FAERS Safety Report 9342967 (Version 2)
Quarter: 2013Q3

REPORT INFORMATION
  Report Type: Spontaneous
  Country: US (occurrence: US)
  Receive Date: 20130611
  Receipt Date: 20130718
  Transmission Date: 20140515
  Serious: No
  Sender: FDA-Public Use
  Company Number: US-FRI-1000045844

PATIENT
  Sex: Female
  Weight: 61.24 kg

DRUGS (14)
  1. TUDORZA PRESSAIR [Suspect]
     Indication: CHRONIC OBSTRUCTIVE PULMONARY DISEASE
     Dosage: 800 MCG
     Route: 055
     Dates: start: 20121214, end: 20130123
  2. DALIRESP [Suspect]
     Indication: CHRONIC OBSTRUCTIVE PULMONARY DISEASE
     Dosage: 500 MCG
     Route: 048
     Dates: start: 20120814, end: 20130531
  3. KLONOPIN [Concomitant]
  4. SPIRIVA [Concomitant]
     Dosage: DAILY
  5. AMBIEN [Concomitant]
     Dosage: 5 MG AT NIGHT PRN
  6. DUONEB [Concomitant]
     Dosage: EVERY 4 HRS
  7. VITAMIN B12 [Concomitant]
     Dosage: MONTHLY
  8. CELEXA [Concomitant]
     Dosage: 20 MG
  9. PLAVIX [Concomitant]
     Dosage: 75 MG
  10. PRAVACHOL [Concomitant]
     Dosage: 40 MG
  11. LISINOPRIL [Concomitant]
     Dosage: 10 MG
  12. ASPIRIN [Concomitant]
     Dosage: 81 MG
  13. LORTAB [Concomitant]
     Dosage: 7.5 MG EVERY 8 HRS PRN
  14. OMEPRAZOLE [Concomitant]
     Dosage: 40 MG

REACTIONS (1)
  - No adverse event [Recovered/Resolved]
